FAERS Safety Report 24460369 (Version 1)
Quarter: 2024Q4

REPORT INFORMATION
  Report Type: Report from Study
  Country: US (occurrence: US)
  Receive Date: 20241018
  Receipt Date: 20241018
  Transmission Date: 20250115
  Serious: No
  Sender: ROCHE
  Company Number: US-ROCHE-3546719

PATIENT
  Age: 68 Year
  Sex: Female
  Weight: 51.26 kg

DRUGS (4)
  1. RITUXAN [Suspect]
     Active Substance: RITUXIMAB
     Indication: Myositis
     Route: 041
     Dates: start: 20240117
  2. FOSAMAX [Concomitant]
     Active Substance: ALENDRONATE SODIUM
  3. AZATHIOPRINE [Concomitant]
     Active Substance: AZATHIOPRINE
  4. HUMAN IMMUNOGLOBULIN G [Concomitant]
     Active Substance: HUMAN IMMUNOGLOBULIN G

REACTIONS (2)
  - Off label use [Unknown]
  - No adverse event [Unknown]

NARRATIVE: CASE EVENT DATE: 20240117
